FAERS Safety Report 9262385 (Version 1)
Quarter: 2013Q2

REPORT INFORMATION
  Report Type: Spontaneous
  Country: US (occurrence: None)
  Receive Date: 20130425
  Receipt Date: 20130425
  Transmission Date: 20140414
  Serious: Yes (Hospitalization)
  Sender: FDA-Public Use
  Company Number: None

PATIENT
  Age: 61 Year
  Sex: Female
  Weight: 65.23 kg

DRUGS (7)
  1. IFOSFAMIDE [Suspect]
  2. PACLITAXEL (TAXOL) [Suspect]
  3. PEGFILGRASTIM (NEULASTA) [Suspect]
  4. DIAZEPAM [Concomitant]
  5. DIPHYENHYDRAMINE [Concomitant]
  6. FENTANYL (DURAGESIC) [Concomitant]
  7. OXYCODONE [Concomitant]

REACTIONS (12)
  - Depressed level of consciousness [None]
  - Oxygen saturation decreased [None]
  - Mental status changes [None]
  - Pneumonia [None]
  - Agitation [None]
  - Unresponsive to stimuli [None]
  - Pain [None]
  - Disorientation [None]
  - Metastases to central nervous system [None]
  - Lymphadenopathy [None]
  - Infection [None]
  - Inflammation [None]
